FAERS Safety Report 9440780 (Version 1)
Quarter: 2013Q3

REPORT INFORMATION
  Report Type: Report from Study
  Country: SY (occurrence: SY)
  Receive Date: 20130805
  Receipt Date: 20130805
  Transmission Date: 20140515
  Serious: Yes (Death, Other)
  Sender: FDA-Public Use
  Company Number: SY-BAXTER-2013BAX030435

PATIENT
  Sex: 0

DRUGS (6)
  1. ENDOXAN [Suspect]
     Indication: T-CELL LYMPHOMA
     Route: 065
  2. HOLOXAN [Suspect]
     Indication: T-CELL LYMPHOMA
     Dosage: 4 GRAMS/M2
     Route: 065
  3. DOXORUBICIN [Suspect]
     Indication: T-CELL LYMPHOMA
     Route: 065
  4. ETOPOSIDE [Suspect]
     Indication: T-CELL LYMPHOMA
     Route: 065
  5. PREDNISOLONE [Suspect]
     Indication: T-CELL LYMPHOMA
     Route: 065
  6. G-CSF [Suspect]
     Indication: T-CELL LYMPHOMA
     Route: 065

REACTIONS (1)
  - Disease progression [Fatal]
